FAERS Safety Report 4986381-9 (Version None)
Quarter: 2006Q2

REPORT INFORMATION
  Report Type: 
  Country: None (occurrence: None)
  Receive Date: 20060428
  Receipt Date: 20060411
  Transmission Date: 20061013
  Serious: Yes (Other)
  Sender: FDA-Public Use
  Company Number: IN-GLAXOSMITHKLINE-B0421669A

PATIENT
  Sex: Male

DRUGS (1)
  1. SUPACEF [Suspect]
     Indication: ORTHOPEDIC PROCEDURE
     Dosage: 1.5G THREE TIMES PER DAY
     Route: 065
     Dates: start: 20060116

REACTIONS (1)
  - FURUNCLE [None]
